FAERS Safety Report 25912005 (Version 1)
Quarter: 2025Q4

REPORT INFORMATION
  Report Type: Spontaneous
  Country: EU (occurrence: EU)
  Receive Date: 20251013
  Receipt Date: 20251013
  Transmission Date: 20260117
  Serious: Yes (Other)
  Sender: BRISTOL-MYERS SQUIBB COMPANY
  Company Number: EU-ABBVIE-6492025

PATIENT
  Age: 72 Year

DRUGS (7)
  1. AZACITIDINE [Suspect]
     Active Substance: AZACITIDINE
     Indication: Acute myeloid leukaemia
     Dosage: 33 CYCLES OF AZACITIDINE DAY 1-7 Q4W
     Dates: start: 202505
  2. AZACITIDINE [Suspect]
     Active Substance: AZACITIDINE
     Dosage: LAST ADMIN DATE:2025?2. VEN/AZA CYCLE
  3. AZACITIDINE [Suspect]
     Active Substance: AZACITIDINE
     Dosage: LAST ADMIN DATE:2025?3. VEN/AZA CYCLE, INCREASINGLY REQUIRING TRANSFUSIONS
  4. AZACITIDINE [Suspect]
     Active Substance: AZACITIDINE
  5. VENETOCLAX [Suspect]
     Active Substance: VENETOCLAX
     Indication: Acute myeloid leukaemia
     Dosage: LAST ADMIN DATE:2025?CONTINUATION OF AZACITIDINE, VENETOCLAX ADDITIVE AFTER DOSING 400MG DAY 1-7, Q4W
     Dates: start: 202505
  6. VENETOCLAX [Suspect]
     Active Substance: VENETOCLAX
     Dosage: LAST ADMIN DATE:2025?2. VEN/AZA CYCLE
  7. VENETOCLAX [Suspect]
     Active Substance: VENETOCLAX
     Dosage: LAST ADMIN DATE:2025?VEN/AZA CYCLE, INCREASINGLY REQUIRING TRANSFUSIONS

REACTIONS (9)
  - Chronic kidney disease [Unknown]
  - Pulmonary hypertension [Unknown]
  - Sleep apnoea syndrome [Unknown]
  - Gastrooesophageal reflux disease [Unknown]
  - Angiopathy [Unknown]
  - Angioedema [Unknown]
  - Hypertension [Unknown]
  - Hypercholesterolaemia [Unknown]
  - Large intestine polyp [Unknown]
